FAERS Safety Report 10504654 (Version 2)
Quarter: 2015Q1

REPORT INFORMATION
  Report Type: Spontaneous
  Country: US (occurrence: None)
  Receive Date: 20140912
  Receipt Date: 20150316
  Transmission Date: 20150720
  Serious: Yes (Other)
  Sender: FDA-Public Use
  Company Number: 1000068395

PATIENT
  Age: 62 Year
  Sex: Female

DRUGS (13)
  1. DALIRESP [Suspect]
     Active Substance: ROFLUMILAST
     Indication: CHRONIC OBSTRUCTIVE PULMONARY DISEASE
     Dosage: 500 MCG (500 MG,1 IN 1 D),ORAL
     Route: 048
     Dates: start: 20140514, end: 20140518
  2. ADVAIR (SERETIDE) [Concomitant]
  3. XANAX [Concomitant]
     Active Substance: ALPRAZOLAM
  4. LASIX [Concomitant]
     Active Substance: FUROSEMIDE
  5. ALBUTEROL. [Concomitant]
     Active Substance: ALBUTEROL
  6. NEXIUM [Concomitant]
     Active Substance: ESOMEPRAZOLE MAGNESIUM
  7. DILAUDID [Concomitant]
     Active Substance: HYDROMORPHONE HYDROCHLORIDE
  8. OXYCONTIN [Concomitant]
     Active Substance: OXYCODONE HYDROCHLORIDE
  9. LEVOTHYROXINE (LEVOTHYROXINE SODIUM) [Concomitant]
  10. POTASSIUM CHLORIDE. [Concomitant]
     Active Substance: POTASSIUM CHLORIDE
  11. CYMBALTA [Concomitant]
     Active Substance: DULOXETINE HYDROCHLORIDE
  12. SPIRIVA (TIOTROPIUM BROMIDE) [Concomitant]
  13. XELODA [Concomitant]
     Active Substance: CAPECITABINE

REACTIONS (1)
  - Suicidal ideation [None]

NARRATIVE: CASE EVENT DATE: 201405
